FAERS Safety Report 9324239 (Version 1)
Quarter: 2013Q2

REPORT INFORMATION
  Report Type: Spontaneous
  Country: DE (occurrence: DE)
  Receive Date: 20130603
  Receipt Date: 20130603
  Transmission Date: 20140414
  Serious: Yes (Congenital Anomaly, Other)
  Sender: FDA-Public Use
  Company Number: GXKR2013DE001971

PATIENT
  Sex: 0

DRUGS (2)
  1. BISOPROLOL [Suspect]
     Dosage: MATERNAL DOSE: 10 [MG/D ]/ REDUCTION TO 5 MG/D FROM WEEK 21 ONWARDS
     Route: 064
  2. FERRO FOLSAN                       /00023601/ [Concomitant]
     Dosage: MATERNAL DOSE: 3.4 [MG/D ] / 400 [MG/D ]
     Route: 064

REACTIONS (3)
  - Haemangioma congenital [Recovering/Resolving]
  - Bradycardia neonatal [Recovered/Resolved]
  - Small for dates baby [Recovered/Resolved]
